FAERS Safety Report 6615275-8 (Version None)
Quarter: 2010Q1

REPORT INFORMATION
  Report Type: 
  Country: None (occurrence: None)
  Receive Date: 20100305
  Receipt Date: 20100223
  Transmission Date: 20100710
  Serious: Yes (Hospitalization)
  Sender: FDA-Public Use
  Company Number: US-NOVOPROD-304755

PATIENT
  Sex: Male
  Weight: 97.052 kg

DRUGS (4)
  1. NOVOLOG [Suspect]
     Indication: TYPE 1 DIABETES MELLITUS
     Dosage: 10 U, TID BEFORE MEALS
     Route: 058
     Dates: start: 20080101
  2. PLAVIX [Concomitant]
     Indication: CARDIAC DISORDER
     Dosage: 1 TAB, QD
     Route: 048
  3. LIPITOR [Concomitant]
     Indication: BLOOD CHOLESTEROL INCREASED
     Dosage: 1 TAB, QD
     Route: 048
  4. NITROGLYCERIN [Concomitant]
     Indication: ANGINA PECTORIS
     Dosage: UNK
     Route: 060

REACTIONS (1)
  - CAROTID ARTERY STENOSIS [None]
